FAERS Safety Report 4909336-9 (Version None)
Quarter: 2006Q1

REPORT INFORMATION
  Report Type: 
  Country: None (occurrence: None)
  Receive Date: 20060213
  Receipt Date: 20060208
  Transmission Date: 20060701
  Serious: Yes (Other)
  Sender: FDA-Public Use
  Company Number: CA-GLAXOSMITHKLINE-A0593111A

PATIENT
  Age: 71 Year
  Sex: Female

DRUGS (2)
  1. RELAFEN [Suspect]
     Indication: ARTHRITIS
     Dosage: 500MG TWICE PER DAY
     Route: 048
     Dates: start: 19960101, end: 20051201
  2. BLOOD PRESSURE MEDICATION [Concomitant]

REACTIONS (1)
  - COLON CANCER [None]
